FAERS Safety Report 8517800-9 (Version None)
Quarter: 2012Q3

REPORT INFORMATION
  Report Type: 
  Country: None (occurrence: None)
  Receive Date: 20120718
  Receipt Date: 20120704
  Transmission Date: 20120928
  Serious: Yes (Hospitalization)
  Sender: FDA-Public Use
  Company Number: FR-PFIZER INC-2012155331

PATIENT
  Age: 64 Year
  Sex: Female

DRUGS (28)
  1. LYRICA [Suspect]
     Dosage: UNK
     Dates: start: 20120424
  2. VANCOMYCIN HYCHLORIDE [Suspect]
     Dosage: UNK
     Dates: start: 20120424
  3. ERYTHROMYCIN [Suspect]
     Dosage: UNK
     Route: 065
     Dates: start: 20120425
  4. PIASCLEDINE [Concomitant]
  5. PARACETAMOL [Concomitant]
     Dosage: UNK
  6. RANITIDINE HYDROCHLORIDE [Suspect]
     Indication: PREMEDICATION
     Dosage: UNK
     Dates: start: 20120423
  7. CELEBREX [Suspect]
     Dosage: UNK
     Dates: start: 20120424
  8. FONDAPARINUX SODIUM [Concomitant]
     Dosage: UNK
  9. ATARAX [Suspect]
     Indication: PREMEDICATION
     Dosage: UNK
     Dates: start: 20120423
  10. LEVOFLOXACIN [Concomitant]
     Dosage: UNK
  11. OXYCONTIN [Suspect]
     Dosage: UNK
     Dates: start: 20120424
  12. PYOSTACINE [Suspect]
     Dosage: UNK
  13. PRADAXA [Suspect]
     Dosage: UNK
     Dates: start: 20120425
  14. KETOPROFEN [Suspect]
     Dosage: UNK
     Dates: start: 20120424
  15. OMEPRAZOLE [Concomitant]
  16. XYZAL [Concomitant]
  17. TERBUTALINE [Concomitant]
     Dosage: UNK
     Dates: start: 20120427
  18. IPRATROPIUM BROMIDE [Concomitant]
     Dosage: UNK
     Dates: start: 20120427
  19. POLARAMINE [Concomitant]
     Dosage: UNK
     Dates: start: 20120427
  20. LEVOFLOXACIN [Concomitant]
     Dosage: UNK
     Dates: start: 20120427
  21. LEVOCETIRIZINE [Concomitant]
     Dosage: UNK
  22. ZOFRAN [Suspect]
     Dosage: UNK
     Dates: start: 20120424
  23. DABIGATRAN ETEX MESILAT [Suspect]
     Dosage: UNK
     Route: 065
     Dates: start: 20120425
  24. ACUPAN [Suspect]
     Dosage: UNK
     Dates: start: 20120424
  25. TRAMADOL HYDROCHLORIDE [Concomitant]
  26. OXYCODONE HCL [Suspect]
     Dosage: UNK
     Dates: start: 20120424
  27. ZANTAC [Suspect]
     Dosage: UNK
     Dates: start: 20120423
  28. ARIXTRA [Concomitant]
     Dosage: UNK
     Dates: start: 20120427

REACTIONS (10)
  - CHOLESTASIS [None]
  - SKIN DISORDER [None]
  - ACUTE GENERALISED EXANTHEMATOUS PUSTULOSIS [None]
  - PYREXIA [None]
  - BRONCHOPNEUMOPATHY [None]
  - INFLAMMATION [None]
  - OEDEMA [None]
  - TOXIC EPIDERMAL NECROLYSIS [None]
  - LIVER INJURY [None]
  - ERYTHEMA [None]
